FAERS Safety Report 10257914 (Version 1)
Quarter: 2014Q2

REPORT INFORMATION
  Report Type: Spontaneous
  Country: US (occurrence: None)
  Receive Date: 20140623
  Receipt Date: 20140623
  Transmission Date: 20141212
  Serious: Yes (Other)
  Sender: FDA-Public Use
  Company Number: None

PATIENT
  Age: 55 Year
  Sex: Female
  Weight: 81.65 kg

DRUGS (1)
  1. METHYLPREDNISOLONE [Suspect]
     Indication: INFLAMMATION
     Dosage: 21 PILLS, PATIENT TOOK 6 PER MED PAK TAKEN BY MOUTH
     Route: 048

REACTIONS (2)
  - Tinnitus [None]
  - Condition aggravated [None]
